FAERS Safety Report 19595299 (Version 3)
Quarter: 2022Q2

REPORT INFORMATION
  Report Type: Spontaneous
  Country: US (occurrence: US)
  Receive Date: 20210722
  Receipt Date: 20220414
  Transmission Date: 20220721
  Serious: Yes (Other)
  Sender: FDA-Public Use
  Company Number: US-PFIZER INC-2021880350

PATIENT
  Age: 60 Year
  Sex: Female
  Weight: 73.016 kg

DRUGS (7)
  1. IBRANCE [Suspect]
     Active Substance: PALBOCICLIB
     Indication: Breast cancer female
     Dosage: 125 MG, CYCLIC(DAILY X 21 DAYS, OFF 7 DAYS)
     Route: 048
     Dates: start: 20210705
  2. IBRANCE [Suspect]
     Active Substance: PALBOCICLIB
     Dosage: 100 MG, CYCLIC(DAILY X 21 DAYS, OFF 7 DAYS)
     Route: 048
  3. FLONASE ALLERGY RELIEF [Concomitant]
     Active Substance: FLUTICASONE PROPIONATE
  4. MAGNESIUM OXIDE [Concomitant]
     Active Substance: MAGNESIUM OXIDE
     Dosage: MAGNESIUM OXIDE 100% POWDER
  5. VITAMIN K2 + D3 [COLECALCIFEROL;MENAQUINONE-7] [Concomitant]
     Dosage: 0.2 %
  6. VITAMIN K2 + D3 [COLECALCIFEROL;MENAQUINONE-7] [Concomitant]
     Dosage: 0.8 %
  7. VITAMIN D3 [Concomitant]
     Active Substance: CHOLECALCIFEROL
     Dosage: 50 UG

REACTIONS (6)
  - Neutropenia [Not Recovered/Not Resolved]
  - Nausea [Not Recovered/Not Resolved]
  - Cough [Not Recovered/Not Resolved]
  - Nasopharyngitis [Not Recovered/Not Resolved]
  - Rhinorrhoea [Not Recovered/Not Resolved]
  - Pain [Not Recovered/Not Resolved]
